FAERS Safety Report 22180034 (Version 1)
Quarter: 2023Q2

REPORT INFORMATION
  Report Type: Spontaneous
  Country: SA (occurrence: None)
  Receive Date: 20230406
  Receipt Date: 20230406
  Transmission Date: 20230721
  Serious: Yes (Other)
  Sender: FDA-Public Use
  Company Number: SA-ADIENNEP-2023AD000277

PATIENT
  Sex: Male

DRUGS (5)
  1. THIOTEPA [Suspect]
     Active Substance: THIOTEPA
     Indication: Allogenic stem cell transplantation
  2. BUSULFAN [Suspect]
     Active Substance: BUSULFAN
     Indication: Allogenic stem cell transplantation
     Dosage: AUC=4000 ()
  3. FLUDARABINE [Suspect]
     Active Substance: FLUDARABINE PHOSPHATE
     Indication: Allogenic stem cell transplantation
  4. THYMOCYTE IMMUNE GLOBULIN NOS [Suspect]
     Active Substance: THYMOCYTE IMMUNE GLOBULIN NOS
     Indication: Allogenic stem cell transplantation
  5. PREDNISOLONE [Suspect]
     Active Substance: PREDNISOLONE
     Dosage: 2MG/KG/DAY WITH VERY SLOW TAPER

REACTIONS (6)
  - Corynebacterium sepsis [Unknown]
  - Systemic candida [Unknown]
  - Cytomegalovirus enteritis [Unknown]
  - Cytomegalovirus viraemia [Unknown]
  - Enterococcal bacteraemia [Unknown]
  - Clostridium difficile infection [Unknown]
